FAERS Safety Report 19510302 (Version 2)
Quarter: 2021Q3

REPORT INFORMATION
  Report Type: Spontaneous
  Country: NL (occurrence: NL)
  Receive Date: 20210709
  Receipt Date: 20210722
  Transmission Date: 20211014
  Serious: Yes (Death)
  Sender: FDA-Public Use
  Company Number: NL-TEVA-2021-NL-1930155

PATIENT
  Age: 70 Year
  Sex: Male

DRUGS (8)
  1. SIMVASTATINE TABLET FO 40MG / BRAND NAME NOT SPECIFIED [Concomitant]
     Active Substance: SIMVASTATIN
     Dosage: 40 MG (MILLIGRAM), THERAPY START DATE:ASKU, THERAPY END DATE:ASKU
  2. SULFASALAZINE TABLET MSR 500MG / BRAND NAME NOT SPECIFIED [Concomitant]
     Active Substance: SULFASALAZINE
     Dosage: 500 MG (MILLIGRAM), THERAPY START DATE:ASKU, THERAPY END DATE:ASKU
  3. HYDROXYCHLOROQUINE TABLET OMHULD 200MG / BRAND NAME NOT SPECIFIED [Concomitant]
     Dosage: 200 MG (MILLIGRAMS), THERAPY START DATE:ASKU, THERAPY END DATE:ASKU
  4. PERINDOPRIL TABLET 8MG (ERBUMINE) / BRAND NAME NOT SPECIFIED [Concomitant]
     Dosage: 8 MG (MILLIGRAM), THERAPY START DATE:ASKU, THERAPY END DATE:ASKU
  5. CLOPIDOGREL TABLET   75MG / BRAND NAME NOT SPECIFIED [Concomitant]
     Active Substance: CLOPIDOGREL BISULFATE
     Dosage: 75 MG (MILLIGRAM) THERAPY START DATE:ASKU ,THERAPY END DATE:ASKU
  6. METHOTREXAAT / BRAND NAME NOT SPECIFIED [Suspect]
     Active Substance: METHOTREXATE
     Indication: RHEUMATOID ARTHRITIS
     Dosage: 25 MG BY INJECTION ONCE A WEEK, THERAPY END DATE: ASKU
     Route: 065
     Dates: start: 2008
  7. PANTOPRAZOL TABLET MSR 20MG / BRAND NAME NOT SPECIFIED [Concomitant]
     Active Substance: PANTOPRAZOLE
     Dosage: 20 MG (MILLIGRAM), THERAPY START DATE:ASKU, THERAPY END DATE:ASKU
  8. ETORICOXIB TABLET FO  90MG / BRAND NAME NOT SPECIFIED [Concomitant]
     Dosage: 90 MG (MILLIGRAM), THERAPY START DATE:ASKU, THERAPY END DATE:ASKU

REACTIONS (6)
  - Coronary artery stenosis [Fatal]
  - Malaise [Fatal]
  - Pneumonia [Fatal]
  - Ventricular tachycardia [Fatal]
  - Myocardial infarction [Fatal]
  - Dyspnoea [Fatal]

NARRATIVE: CASE EVENT DATE: 20210607
